FAERS Safety Report 17567005 (Version 2)
Quarter: 2020Q2

REPORT INFORMATION
  Report Type: Spontaneous
  Country: RU (occurrence: RU)
  Receive Date: 20200320
  Receipt Date: 20200406
  Transmission Date: 20200713
  Serious: Yes (Hospitalization, Other)
  Sender: FDA-Public Use
  Company Number: RU-JNJFOC-20200319760

PATIENT
  Sex: Male
  Weight: 87 kg

DRUGS (9)
  1. VEROSPIRON [Concomitant]
     Active Substance: SPIRONOLACTONE
     Indication: PULMONARY HYPERTENSION
     Dosage: 50 MG
     Dates: start: 201701, end: 20190927
  2. TORASEMIDE [Concomitant]
     Active Substance: TORSEMIDE
     Dosage: 10 MG
     Dates: start: 20190928
  3. SILDENAFIL. [Concomitant]
     Active Substance: SILDENAFIL
     Dosage: 40 MG
     Dates: start: 201504, end: 201701
  4. RIVAROXABAN [Suspect]
     Active Substance: RIVAROXABAN
     Dosage: UNK
     Route: 048
     Dates: start: 201909
  5. WARFARIN [Concomitant]
     Active Substance: WARFARIN
     Dosage: 5 MG
     Dates: start: 201811, end: 20190927
  6. ROSUVASTATIN. [Concomitant]
     Active Substance: ROSUVASTATIN
     Dosage: 20 MG
     Dates: start: 20190927
  7. BISOPROLOL [Concomitant]
     Active Substance: BISOPROLOL
     Dosage: 2.5 MG
     Dates: start: 20190927
  8. RIVAROXABAN [Suspect]
     Active Substance: RIVAROXABAN
     Indication: PULMONARY HYPERTENSION
     Dosage: 20 MG
     Route: 048
     Dates: start: 201510, end: 201811
  9. SILDENAFIL. [Concomitant]
     Active Substance: SILDENAFIL
     Dosage: 40 MG
     Dates: start: 201304, end: 201503

REACTIONS (1)
  - Hypotension [Recovered/Resolved]

NARRATIVE: CASE EVENT DATE: 20190927
